FAERS Safety Report 8140537-5 (Version None)
Quarter: 2012Q1

REPORT INFORMATION
  Report Type: 
  Country: None (occurrence: None)
  Receive Date: 20120216
  Receipt Date: 20120210
  Transmission Date: 20120608
  Serious: Yes (Other)
  Sender: FDA-Public Use
  Company Number: AU-PFIZER INC-2011316489

PATIENT
  Age: 54 Year
  Sex: Male
  Weight: 70 kg

DRUGS (5)
  1. REVATIO [Suspect]
     Indication: PULMONARY ARTERIAL HYPERTENSION
     Dosage: 20 MG, 3X/DAY
     Route: 048
     Dates: start: 20050101
  2. VALACICLOVIR [Concomitant]
     Indication: HEART TRANSPLANT
  3. CYCLOSPORINE [Concomitant]
     Indication: HEART TRANSPLANT
  4. PREDNISOLONE [Concomitant]
     Indication: HEART TRANSPLANT
  5. MYCOPHENOLATE MOFETIL [Concomitant]
     Indication: HEART TRANSPLANT

REACTIONS (2)
  - CARDIAC INDEX DECREASED [None]
  - VASCULAR RESISTANCE PULMONARY INCREASED [None]
